FAERS Safety Report 5563685-2 (Version None)
Quarter: 2007Q4

REPORT INFORMATION
  Report Type: 
  Country: None (occurrence: None)
  Receive Date: 20071217
  Receipt Date: 20070730
  Transmission Date: 20080405
  Serious: No
  Sender: FDA-Public Use
  Company Number: US-ASTRAZENECA-2007UW18267

PATIENT
  Age: 84 Year
  Sex: Female
  Weight: 86.2 kg

DRUGS (1)
  1. CRESTOR [Suspect]
     Route: 048

REACTIONS (2)
  - HYPOAESTHESIA [None]
  - PARAESTHESIA [None]
